FAERS Safety Report 4475725-2 (Version None)
Quarter: 2004Q4

REPORT INFORMATION
  Report Type: 
  Country: None (occurrence: None)
  Receive Date: 20041015
  Receipt Date: 20041006
  Transmission Date: 20050328
  Serious: Yes (Hospitalization)
  Sender: FDA-Public Use
  Company Number: CA-AMGEN-US094388

PATIENT
  Sex: Female

DRUGS (1)
  1. ENBREL [Suspect]
     Indication: RHEUMATOID ARTHRITIS
     Dates: start: 20040509, end: 20040510

REACTIONS (4)
  - CONFUSIONAL STATE [None]
  - DIABETES MELLITUS [None]
  - LEUKOCYTOSIS [None]
  - OEDEMA PERIPHERAL [None]
